FAERS Safety Report 6399184-8 (Version None)
Quarter: 2009Q4

REPORT INFORMATION
  Report Type: 
  Country: None (occurrence: None)
  Receive Date: 20091008
  Receipt Date: 20090930
  Transmission Date: 20100525
  Serious: Yes (Other)
  Sender: FDA-Public Use
  Company Number: CH-000944

PATIENT
  Sex: Female

DRUGS (4)
  1. MINIRIN [Suspect]
     Indication: DIABETES INSIPIDUS
     Dosage: (ORAL)
     Route: 048
     Dates: start: 19890601
  2. AMLODIPINE [Concomitant]
  3. EUTHROID-1 [Concomitant]
  4. CALCIMAGON-D3 [Concomitant]

REACTIONS (6)
  - BLOOD SODIUM DECREASED [None]
  - CYSTITIS [None]
  - DEHYDRATION [None]
  - DRUG INEFFECTIVE [None]
  - HYPERTENSION [None]
  - LABORATORY TEST ABNORMAL [None]
